FAERS Safety Report 10899373 (Version 1)
Quarter: 2015Q1

REPORT INFORMATION
  Report Type: Spontaneous
  Country: US (occurrence: US)
  Receive Date: 20150309
  Receipt Date: 20150309
  Transmission Date: 20150721
  Serious: Yes (Hospitalization, Other)
  Sender: FDA-Public Use
  Company Number: US-CELGENEUS-USA-2015030303

PATIENT
  Sex: Male
  Weight: 76.73 kg

DRUGS (1)
  1. THALOMID [Suspect]
     Active Substance: THALIDOMIDE
     Indication: GASTROINTESTINAL DISORDER
     Dosage: 100 MILLIGRAM
     Route: 048
     Dates: start: 20141010

REACTIONS (1)
  - Intestinal obstruction [Unknown]
